FAERS Safety Report 25517343 (Version 1)
Quarter: 2025Q3

REPORT INFORMATION
  Report Type: Spontaneous
  Country: US (occurrence: US)
  Receive Date: 20250704
  Receipt Date: 20250704
  Transmission Date: 20251020
  Serious: No
  Sender: RADIUS PHARM
  Company Number: US-RADIUS HEALTH INC.-US-RADIUS-25047400

PATIENT
  Sex: Female
  Weight: 59.683 kg

DRUGS (1)
  1. TYMLOS [Suspect]
     Active Substance: ABALOPARATIDE
     Indication: Senile osteoporosis
     Dosage: 80 MICROGRAM, IN THE MORNING
     Route: 058

REACTIONS (3)
  - Somnolence [Unknown]
  - Fatigue [Unknown]
  - Headache [Unknown]
